FAERS Safety Report 11451020 (Version 1)
Quarter: 2015Q3

REPORT INFORMATION
  Report Type: Spontaneous
  Country: AU (occurrence: AU)
  Receive Date: 20150903
  Receipt Date: 20150903
  Transmission Date: 20151125
  Serious: Yes (Other)
  Sender: FDA-Public Use
  Company Number: AU-CIPLA LTD.-2015AU07098

PATIENT

DRUGS (12)
  1. CARBOPLATIN. [Suspect]
     Active Substance: CARBOPLATIN
     Indication: OPTIC GLIOMA
     Dosage: UNK FOR 2.5 MONTHS
     Route: 065
  2. VINCRISTINE [Suspect]
     Active Substance: VINCRISTINE
     Indication: OPTIC GLIOMA
     Dosage: UNK FOR 2.5 MONTHS
     Route: 065
  3. TEMOZOLOMIDE. [Suspect]
     Active Substance: TEMOZOLOMIDE
     Indication: OPTIC GLIOMA
     Dosage: UNK,  24 MONTHS
     Route: 065
  4. VINBLASTINE [Suspect]
     Active Substance: VINBLASTINE
     Indication: OPTIC GLIOMA
     Dosage: UNK FOR 3 MONTHS
     Route: 065
  5. VINCRISTINE [Suspect]
     Active Substance: VINCRISTINE
     Indication: BRAIN STEM GLIOMA
  6. VINBLASTINE [Suspect]
     Active Substance: VINBLASTINE
     Indication: BRAIN STEM GLIOMA
  7. TARCEVA [Suspect]
     Active Substance: ERLOTINIB HYDROCHLORIDE
     Indication: BRAIN STEM GLIOMA
  8. CARBOPLATIN. [Suspect]
     Active Substance: CARBOPLATIN
     Indication: BRAIN STEM GLIOMA
  9. RAPAMYCIN [Suspect]
     Active Substance: SIROLIMUS
     Indication: BRAIN STEM GLIOMA
  10. TEMOZOLOMIDE. [Suspect]
     Active Substance: TEMOZOLOMIDE
     Indication: BRAIN STEM GLIOMA
  11. RAPAMYCIN [Suspect]
     Active Substance: SIROLIMUS
     Indication: OPTIC GLIOMA
     Dosage: UNK FOR 3 MONTHS
     Route: 065
  12. TARCEVA [Suspect]
     Active Substance: ERLOTINIB HYDROCHLORIDE
     Indication: OPTIC GLIOMA
     Dosage: UNK FOR 3 MONTHS
     Route: 065

REACTIONS (2)
  - Treatment failure [Unknown]
  - Disease progression [Not Recovered/Not Resolved]
